FAERS Safety Report 19776318 (Version 1)
Quarter: 2021Q3

REPORT INFORMATION
  Report Type: Spontaneous
  Country: US (occurrence: US)
  Receive Date: 20210902
  Receipt Date: 20210902
  Transmission Date: 20211014
  Serious: No
  Sender: FDA-Public Use
  Company Number: US-ELI_LILLY_AND_COMPANY-US202108011286

PATIENT
  Sex: Female

DRUGS (3)
  1. TALTZ [Suspect]
     Active Substance: IXEKIZUMAB
     Indication: PRODUCT USED FOR UNKNOWN INDICATION
     Dosage: UNK UNK, UNKNOWN
     Route: 058
     Dates: start: 2020, end: 2021
  2. HUMIRA [Suspect]
     Active Substance: ADALIMUMAB
     Dosage: 40 MG, OTHER (1 IN 14 D)
     Route: 058
     Dates: start: 20210721
  3. HUMIRA [Suspect]
     Active Substance: ADALIMUMAB
     Indication: PSORIATIC ARTHROPATHY
     Dosage: 40 MG, OTHER (1 IN 14 D)
     Route: 058
     Dates: end: 202010

REACTIONS (8)
  - Joint range of motion decreased [Unknown]
  - Mobility decreased [Unknown]
  - Arthritis [Unknown]
  - Urticaria [Unknown]
  - Arthralgia [Unknown]
  - Joint stiffness [Unknown]
  - Grip strength decreased [Unknown]
  - Feeling abnormal [Unknown]

NARRATIVE: CASE EVENT DATE: 2021
